FAERS Safety Report 19044425 (Version 1)
Quarter: 2021Q1

REPORT INFORMATION
  Report Type: Spontaneous
  Country: US (occurrence: US)
  Receive Date: 20210323
  Receipt Date: 20210323
  Transmission Date: 20210420
  Serious: Yes (Disabling)
  Sender: FDA-Public Use
  Company Number: None

PATIENT
  Age: 54 Year
  Sex: Male
  Weight: 90.45 kg

DRUGS (5)
  1. XANAX [Concomitant]
     Active Substance: ALPRAZOLAM
  2. LOW DOSE ASPIRIN [Concomitant]
     Active Substance: ASPIRIN
  3. MONTELUKAST SODIUM 10 MG [Suspect]
     Active Substance: MONTELUKAST SODIUM
     Indication: ASTHMA
     Route: 048
     Dates: start: 20200304, end: 20210322
  4. MULTIVITAMIN [Concomitant]
     Active Substance: VITAMINS
  5. GARLIC CAPSULES [Concomitant]

REACTIONS (9)
  - Alopecia [None]
  - Pain in extremity [None]
  - Wheezing [None]
  - Amnesia [None]
  - Back pain [None]
  - Arthralgia [None]
  - Anxiety [None]
  - Confusional state [None]
  - Depression [None]

NARRATIVE: CASE EVENT DATE: 20200831
